FAERS Safety Report 5818261-0 (Version None)
Quarter: 2008Q3

REPORT INFORMATION
  Report Type: 
  Country: None (occurrence: None)
  Receive Date: 20080722
  Receipt Date: 20080716
  Transmission Date: 20090109
  Serious: Yes (Hospitalization)
  Sender: FDA-Public Use
  Company Number: US-ABBOTT-08P-163-0463685-00

PATIENT
  Sex: Female
  Weight: 59.02 kg

DRUGS (1)
  1. ERYTHROMYCIN [Suspect]
     Indication: SINUSITIS
     Route: 048
     Dates: start: 19890101, end: 19890101

REACTIONS (2)
  - ABDOMINAL PAIN UPPER [None]
  - CHEST PAIN [None]
